FAERS Safety Report 15125642 (Version 3)
Quarter: 2018Q3

REPORT INFORMATION
  Report Type: Spontaneous
  Country: FR (occurrence: FR)
  Receive Date: 20180710
  Receipt Date: 20180725
  Transmission Date: 20181010
  Serious: Yes (Death)
  Sender: FDA-Public Use
  Company Number: FR-PFIZER INC-2018273686

PATIENT
  Age: 62 Year
  Sex: Male
  Weight: 72 kg

DRUGS (13)
  1. DIFFU K [Suspect]
     Active Substance: POTASSIUM CHLORIDE
     Dosage: 1800 MG, 1X/DAY
     Route: 048
     Dates: start: 20180503, end: 20180508
  2. LORAZEPAM. [Concomitant]
     Active Substance: LORAZEPAM
     Dosage: UNK
     Route: 065
  3. LANSOPRAZOLE. [Concomitant]
     Active Substance: LANSOPRAZOLE
     Dosage: UNK
     Route: 065
  4. BETAHISTINE (CHLORHYDRATE) [Concomitant]
     Active Substance: BETAHISTINE HYDROCHLORIDE
     Dosage: UNK
     Route: 065
  5. LARGACTIL 100 MG [Concomitant]
     Active Substance: CHLORPROMAZINE
     Dosage: UNK
     Route: 065
  6. SULFARLEM [Concomitant]
     Active Substance: ANETHOLTRITHION
     Dosage: UNK
     Route: 065
  7. TERALITHE [Concomitant]
     Active Substance: LITHIUM CARBONATE
     Dosage: UNK
     Route: 065
  8. AKINETON [Concomitant]
     Active Substance: BIPERIDEN HYDROCHLORIDE
     Dosage: UNK
     Route: 065
  9. ACIDE FOLIQUE [Concomitant]
     Active Substance: FOLIC ACID
     Dosage: UNK
     Route: 065
  10. DOCETAXEL. [Suspect]
     Active Substance: DOCETAXEL
     Indication: LUNG NEOPLASM MALIGNANT
     Dosage: 130 MG, SINGLE
     Route: 041
     Dates: start: 20180430, end: 20180430
  11. CORTANCYL 20 MG [Suspect]
     Active Substance: PREDNISONE
     Indication: LUNG NEOPLASM MALIGNANT
     Dosage: 40 MG, 1X/DAY
     Route: 048
     Dates: start: 20180427, end: 20180510
  12. CETIRIZINE (DICHLORHYDRATE DE ) [Concomitant]
     Dosage: UNK
     Route: 065
  13. CISPLATIN. [Suspect]
     Active Substance: CISPLATIN
     Indication: LUNG NEOPLASM MALIGNANT
     Dosage: 130 MG, SINGLE
     Route: 041
     Dates: start: 20180430, end: 20180430

REACTIONS (4)
  - Hyperkalaemia [Fatal]
  - Intestinal obstruction [Fatal]
  - Septic shock [Fatal]
  - Renal failure [Fatal]

NARRATIVE: CASE EVENT DATE: 20180508
